FAERS Safety Report 14930279 (Version 1)
Quarter: 2018Q2

REPORT INFORMATION
  Report Type: Spontaneous
  Country: GB (occurrence: GB)
  Receive Date: 20180523
  Receipt Date: 20180523
  Transmission Date: 20180711
  Serious: Yes (Hospitalization, Other)
  Sender: FDA-Public Use
  Company Number: GB-B.I. PHARMACEUTICALS,INC./RIDGEFIELD-2018-12-001791

PATIENT
  Age: 85 Year
  Sex: Female
  Weight: 95.19 kg

DRUGS (16)
  1. CO-DYDRAMOL [Concomitant]
     Active Substance: ACETAMINOPHEN\DIHYDROCODEINE
     Indication: PRODUCT USED FOR UNKNOWN INDICATION
     Dosage: 10MG/500MG, 2 TABLETS  UP TO 4 TIMES A DAY (NOT TO BE TAKEN WITH PARACETAMOL); AS REQUIRED, FORM-245
     Route: 065
     Dates: start: 20180315
  2. SPIRONOLACTONE. [Concomitant]
     Active Substance: SPIRONOLACTONE
     Indication: PRODUCT USED FOR UNKNOWN INDICATION
     Dosage: PHARMACEUTICAL FORM-245
     Route: 065
     Dates: start: 20180124, end: 20180226
  3. ACETYLSALICYLIC ACID [Suspect]
     Active Substance: ASPIRIN
     Indication: PRODUCT USED FOR UNKNOWN INDICATION
     Dosage: PHARMACEUTICAL FORM-39
     Route: 065
     Dates: start: 20180131
  4. MIRABEGRON [Concomitant]
     Active Substance: MIRABEGRON
     Indication: PRODUCT USED FOR UNKNOWN INDICATION
     Dosage: PHARMACEUTICAL FORM-MODIFIED-RELEASE TABLETS
     Route: 065
     Dates: start: 20180126, end: 20180307
  5. AMITRIPTYLINE [Concomitant]
     Active Substance: AMITRIPTYLINE
     Indication: PRODUCT USED FOR UNKNOWN INDICATION
     Dosage: IN THE NIGHT. PHARMACEUTICAL FORM- 245
     Route: 065
     Dates: start: 20180220, end: 20180307
  6. APIXABAN [Concomitant]
     Active Substance: APIXABAN
     Indication: PRODUCT USED FOR UNKNOWN INDICATION
     Dosage: (START 23.04.18), PHARMACEUTICAL FORM-245
     Route: 065
     Dates: start: 20180419
  7. DAKTACORT [Concomitant]
     Active Substance: HYDROCORTISONE\MICONAZOLE NITRATE
     Indication: PRODUCT USED FOR UNKNOWN INDICATION
     Dosage: PHARMACEUTICAL FORM-156
     Route: 065
     Dates: start: 20180125
  8. FUROSEMIDE. [Concomitant]
     Active Substance: FUROSEMIDE
     Indication: PRODUCT USED FOR UNKNOWN INDICATION
     Dosage: FORM- 245
     Route: 065
     Dates: start: 20180131, end: 20180314
  9. ALLOPURINOL. [Concomitant]
     Active Substance: ALLOPURINOL
     Indication: PRODUCT USED FOR UNKNOWN INDICATION
     Dosage: PHARMACEUTICAL FORM-245
     Route: 065
     Dates: start: 20180126, end: 20180307
  10. BISOPROLOL [Concomitant]
     Active Substance: BISOPROLOL
     Indication: PRODUCT USED FOR UNKNOWN INDICATION
     Dosage: PHARMACEUTICAL FORM-245, CUMULATIVE DOSE TO FIRST REACTION- 192.39583 MG
     Route: 065
     Dates: start: 20180126, end: 20180307
  11. OMEPRAZOLE. [Concomitant]
     Active Substance: OMEPRAZOLE
     Indication: PRODUCT USED FOR UNKNOWN INDICATION
     Dosage: PHARMACEUTICAL FORM-90
     Route: 065
     Dates: start: 20180419
  12. DOUBLEBASE [Concomitant]
     Active Substance: ISOPROPYL MYRISTATE\PARAFFIN
     Indication: PRODUCT USED FOR UNKNOWN INDICATION
     Dosage: AS DIRECTED, PHARMACEUTICAL FORM-95
     Route: 065
     Dates: start: 20180403
  13. PRAVASTATIN. [Concomitant]
     Active Substance: PRAVASTATIN
     Indication: PRODUCT USED FOR UNKNOWN INDICATION
     Dosage: AT NIGHT. PHARMACEUTICAL FORM-245
     Route: 065
     Dates: start: 20180126, end: 20180307
  14. RAMIPRIL. [Concomitant]
     Active Substance: RAMIPRIL
     Indication: PRODUCT USED FOR UNKNOWN INDICATION
     Dosage: PHARMACEUTICAL FORM-5
     Route: 065
     Dates: start: 20180126, end: 20180220
  15. LANSOPRAZOLE. [Concomitant]
     Active Substance: LANSOPRAZOLE
     Indication: PRODUCT USED FOR UNKNOWN INDICATION
     Dosage: PHARMACEUTICAL FORM-90
     Route: 065
     Dates: start: 20180131, end: 20180314
  16. PRADAXA [Suspect]
     Active Substance: DABIGATRAN ETEXILATE MESYLATE
     Indication: PRODUCT USED FOR UNKNOWN INDICATION
     Route: 065

REACTIONS (5)
  - Creatinine renal clearance decreased [Unknown]
  - Gastritis [Recovering/Resolving]
  - Gastrointestinal haemorrhage [Unknown]
  - Gastritis erosive [Unknown]
  - Melaena [Unknown]

NARRATIVE: CASE EVENT DATE: 20180413
